FAERS Safety Report 7090503-6 (Version None)
Quarter: 2010Q4

REPORT INFORMATION
  Report Type: 
  Country: None (occurrence: None)
  Receive Date: 20101109
  Receipt Date: 20101025
  Transmission Date: 20110411
  Serious: Yes (Other)
  Sender: FDA-Public Use
  Company Number: PHBS2002IT02679

PATIENT
  Age: 23 Year
  Sex: Female

DRUGS (2)
  1. DEFEROXAMINE MESYLATE [Suspect]
     Indication: THALASSAEMIA BETA
     Route: 065
  2. ASPIRIN [Concomitant]
     Dosage: 100 MG/D
     Route: 065

REACTIONS (5)
  - CARDIOMYOPATHY [None]
  - DRUG EXPOSURE DURING PREGNANCY [None]
  - EJECTION FRACTION DECREASED [None]
  - NORMAL NEWBORN [None]
  - VENTRICULAR INTERNAL DIAMETER [None]
